FAERS Safety Report 7634806-2 (Version None)
Quarter: 2011Q3

REPORT INFORMATION
  Report Type: 
  Country: None (occurrence: None)
  Receive Date: 20110726
  Receipt Date: 20110715
  Transmission Date: 20111222
  Serious: No
  Sender: FDA-Public Use
  Company Number: US-BIOGENIDEC-2011BI025847

PATIENT
  Sex: Male

DRUGS (1)
  1. TYSABRI [Suspect]
     Indication: MULTIPLE SCLEROSIS
     Route: 042
     Dates: start: 20081226

REACTIONS (6)
  - WEIGHT INCREASED [None]
  - PULPITIS DENTAL [None]
  - TOOTH EXTRACTION [None]
  - NEURALGIA [None]
  - MOBILITY DECREASED [None]
  - SCIATICA [None]
